FAERS Safety Report 7089453-0 (Version None)
Quarter: 2010Q4

REPORT INFORMATION
  Report Type: 
  Country: None (occurrence: None)
  Receive Date: 20101108
  Receipt Date: 20101029
  Transmission Date: 20110411
  Serious: Yes (Other)
  Sender: FDA-Public Use
  Company Number: PL-JNJFOC-20101007764

PATIENT
  Sex: Female

DRUGS (1)
  1. CILEST [Suspect]
     Indication: PRODUCT USED FOR UNKNOWN INDICATION
     Route: 048

REACTIONS (3)
  - INCREASED APPETITE [None]
  - MENTAL DISORDER [None]
  - SKIN DISORDER [None]
